FAERS Safety Report 8619355 (Version 6)
Quarter: 2012Q4

REPORT INFORMATION
  Report Type: Report from Study
  Country: PH (occurrence: PH)
  Receive Date: 20120618
  Receipt Date: 20120924
  Transmission Date: 20130627
  Serious: Yes (Hospitalization)
  Sender: FDA-Public Use
  Company Number: PH-PFIZER INC-2011026444

PATIENT
  Age: 24 Year
  Sex: Female
  Weight: 31.5 kg

DRUGS (2)
  1. AXITINIB [Suspect]
     Indication: METASTATIC RENAL CELL CARCINOMA
     Dosage: 5 mg, 2x/day
     Route: 048
     Dates: start: 20110106, end: 20110202
  2. AXITINIB [Suspect]
     Dosage: 7 mg, 2x/day
     Route: 048
     Dates: start: 20110203, end: 20110205

REACTIONS (2)
  - Oesophagitis [Recovered/Resolved]
  - Gastritis [Recovered/Resolved]
